FAERS Safety Report 5223324-7 (Version None)
Quarter: 2007Q1

REPORT INFORMATION
  Report Type: 
  Country: None (occurrence: None)
  Receive Date: 20061201
  Receipt Date: 20060719
  Transmission Date: 20070707
  Serious: No
  Sender: FDA-Public Use
  Company Number: 2006PV017879

PATIENT
  Age: 59 Year
  Sex: Female
  Weight: 112.4921 kg

DRUGS (3)
  1. BYETTA [Suspect]
     Indication: DIABETES MELLITUS NON-INSULIN-DEPENDENT
     Dosage: 5 MCG;BID;SC 5MCG;BID;SC
     Route: 058
     Dates: start: 20060601, end: 20060101
  2. BYETTA [Suspect]
     Indication: DIABETES MELLITUS NON-INSULIN-DEPENDENT
     Dosage: 5 MCG;BID;SC 5MCG;BID;SC
     Route: 058
     Dates: start: 20060715
  3. NOVOLIN 50/50 [Concomitant]

REACTIONS (3)
  - BLOOD GLUCOSE INCREASED [None]
  - ENERGY INCREASED [None]
  - WEIGHT DECREASED [None]
